FAERS Safety Report 8288925-0 (Version None)
Quarter: 2012Q2

REPORT INFORMATION
  Report Type: 
  Country: None (occurrence: None)
  Receive Date: 20120412
  Receipt Date: 20120402
  Transmission Date: 20120825
  Serious: Yes (Hospitalization)
  Sender: FDA-Public Use
  Company Number: LTI2011A00226

PATIENT
  Age: 74 Year
  Sex: Male

DRUGS (10)
  1. JOSIR (TAMSLOSIN HYDROCHLORIDE) [Concomitant]
  2. STAGID (METFORMIN EMBONATE) [Concomitant]
  3. GLUCOPHAGE [Concomitant]
  4. JANUVIRA (SITAGLIPTIN PHOSPHATE) [Concomitant]
  5. ACTOS [Suspect]
     Indication: TYPE 2 DIABETES MELLITUS
     Dosage: SEE IMAGE
     Route: 048
     Dates: start: 20040401, end: 20040923
  6. ACTOS [Suspect]
     Indication: TYPE 2 DIABETES MELLITUS
     Dosage: SEE IMAGE
     Route: 048
     Dates: start: 20071220, end: 20110210
  7. ACTOS [Suspect]
     Indication: TYPE 2 DIABETES MELLITUS
     Dosage: SEE IMAGE
     Route: 048
     Dates: start: 20110210, end: 20110513
  8. ACTOS [Suspect]
     Indication: TYPE 2 DIABETES MELLITUS
     Dosage: SEE IMAGE
     Route: 048
     Dates: start: 20070524, end: 20071220
  9. DIAMIRON (GLICLAZIDE) [Concomitant]
  10. LIPANTHYL (FENFIBRATE) [Concomitant]

REACTIONS (2)
  - TRANSITIONAL CELL CARCINOMA [None]
  - BLADDER CANCER [None]
